FAERS Safety Report 21597141 (Version 2)
Quarter: 2024Q1

REPORT INFORMATION
  Report Type: Spontaneous
  Country: US (occurrence: US)
  Receive Date: 20221115
  Receipt Date: 20240205
  Transmission Date: 20240409
  Serious: No
  Sender: FDA-Public Use
  Company Number: US-BIOGEN-2022BI01169245

PATIENT
  Sex: Male

DRUGS (1)
  1. TYSABRI [Suspect]
     Active Substance: NATALIZUMAB
     Indication: Multiple sclerosis
     Dosage: INFUSE 1 VIAL (300 MG) INTRAVENOUSLY PER PRESCRIBING INFORMATION EVERY 4 WEEKS
     Route: 050

REACTIONS (2)
  - Off label use [Not Recovered/Not Resolved]
  - Infusion site rash [Unknown]
